FAERS Safety Report 8169498-X (Version None)
Quarter: 2012Q1

REPORT INFORMATION
  Report Type: 
  Country: None (occurrence: None)
  Receive Date: 20120228
  Receipt Date: 20120220
  Transmission Date: 20120608
  Serious: Yes (Other)
  Sender: FDA-Public Use
  Company Number: US-CELGENEUS-163-20785-11121966

PATIENT
  Sex: Female
  Weight: 28 kg

DRUGS (9)
  1. THALOMID [Suspect]
     Indication: HISTIOCYTOSIS
     Dosage: 50 MILLIGRAM
     Route: 048
     Dates: start: 20110825
  2. APAP W/ CODEINE [Concomitant]
     Indication: PAIN
     Dosage: 6 MILLIGRAM
     Route: 048
     Dates: start: 20101108, end: 20111216
  3. ACETAMINOPHEN [Concomitant]
     Route: 065
  4. ONDANSETRON [Concomitant]
     Indication: NAUSEA
     Dosage: 2 MILLIGRAM
     Route: 048
     Dates: start: 20110321, end: 20120210
  5. ONDANSETRON [Concomitant]
     Indication: VOMITING
  6. HALOPERIDOL [Concomitant]
     Dosage: 2.5-0-5MG
     Route: 048
     Dates: start: 20101115, end: 20120210
  7. MONTELUKAST [Concomitant]
     Indication: SEASONAL ALLERGY
     Dosage: 5 MILLIGRAM
     Route: 048
     Dates: start: 20110321, end: 20120210
  8. COTRIM [Concomitant]
     Dosage: 5 MILLIGRAM
     Route: 048
     Dates: start: 20100701, end: 20120210
  9. THALOMID [Suspect]
     Dosage: 100 MILLIGRAM
     Route: 048
     Dates: start: 20111001

REACTIONS (1)
  - ACTIVATED PARTIAL THROMBOPLASTIN TIME PROLONGED [None]
